FAERS Safety Report 11421156 (Version 1)
Quarter: 2015Q3

REPORT INFORMATION
  Report Type: Other
  Country: US (occurrence: US)
  Receive Date: 20150826
  Receipt Date: 20150826
  Transmission Date: 20151125
  Serious: No
  Sender: FDA-Public Use
  Company Number: US-GUERBET LLC-1041397

PATIENT
  Age: 75 Year
  Sex: Male

DRUGS (1)
  1. LIPIODOL [Suspect]
     Active Substance: ETHIODIZED OIL

REACTIONS (1)
  - Pulmonary embolism [Recovered/Resolved]
